FAERS Safety Report 9651473 (Version 1)
Quarter: 2013Q4

REPORT INFORMATION
  Report Type: Spontaneous
  Country: US (occurrence: None)
  Receive Date: 20131028
  Receipt Date: 20131028
  Transmission Date: 20140711
  Serious: Yes (Hospitalization)
  Sender: FDA-Public Use
  Company Number: None

PATIENT
  Age: 87 Year
  Sex: Female
  Weight: 48 kg

DRUGS (1)
  1. AMLACTIN [Suspect]
     Indication: DERMATITIS CONTACT
     Route: 061
     Dates: start: 20130822, end: 20131020

REACTIONS (5)
  - Lethargy [None]
  - Vomiting [None]
  - Mental status changes [None]
  - Ammonia increased [None]
  - Encephalopathy [None]
